FAERS Safety Report 18355582 (Version 2)
Quarter: 2020Q4

REPORT INFORMATION
  Report Type: Spontaneous
  Country: DE (occurrence: DE)
  Receive Date: 20201007
  Receipt Date: 20201009
  Transmission Date: 20210114
  Serious: Yes (Other)
  Sender: FDA-Public Use
  Company Number: DE-TEVA-2020-DE-1835883

PATIENT
  Age: 1 Day
  Sex: Female
  Weight: 4.4 kg

DRUGS (4)
  1. AZATHIOPRINE. [Concomitant]
     Active Substance: AZATHIOPRINE
     Indication: AUTOIMMUNE HEPATITIS
     Dosage: 100 [MG/D ]/ INITIAL 50MG DAILY, INCREASED TO 100MG/D
     Route: 064
     Dates: start: 20191014, end: 20200625
  2. HCT [Concomitant]
     Active Substance: HYDROCHLOROTHIAZIDE
     Indication: PRODUCT USED FOR UNKNOWN INDICATION
     Route: 064
     Dates: start: 20191014, end: 20200625
  3. TORASEMID [Concomitant]
     Active Substance: TORSEMIDE
     Indication: PRODUCT USED FOR UNKNOWN INDICATION
     Route: 064
     Dates: start: 20191014, end: 20200625
  4. PREDNISOLON [Suspect]
     Active Substance: PREDNISOLONE
     Indication: AUTOIMMUNE HEPATITIS
     Dosage: 10 MILLIGRAM DAILY;
     Route: 064
     Dates: start: 20191014, end: 20200625

REACTIONS (5)
  - Premature baby [Recovered/Resolved]
  - Atrial septal defect [Unknown]
  - Large for dates baby [Recovered/Resolved]
  - Hypoglycaemia neonatal [Recovered/Resolved]
  - Foetal exposure during pregnancy [Unknown]

NARRATIVE: CASE EVENT DATE: 20200625
